FAERS Safety Report 20837111 (Version 2)
Quarter: 2022Q3

REPORT INFORMATION
  Report Type: Report from Study
  Country: US (occurrence: US)
  Receive Date: 20220517
  Receipt Date: 20220907
  Transmission Date: 20221027
  Serious: Yes (Other)
  Sender: FDA-Public Use
  Company Number: US-HBP-2022US026452

PATIENT
  Sex: Male

DRUGS (4)
  1. VALCHLOR [Suspect]
     Active Substance: MECHLORETHAMINE
     Indication: Cutaneous T-cell lymphoma
     Dosage: THIN FILM, QD
     Route: 061
     Dates: start: 20170118
  2. VALCHLOR [Suspect]
     Active Substance: MECHLORETHAMINE
     Dosage: UNK, 4/WEEK
     Route: 061
     Dates: start: 2021
  3. VALCHLOR [Suspect]
     Active Substance: MECHLORETHAMINE
     Dosage: THIN FILM, ONCE DAILY AS TOLERATED
     Route: 061
  4. VALCHLOR [Suspect]
     Active Substance: MECHLORETHAMINE
     Dosage: THIN FILM, QD
     Route: 061
     Dates: start: 2022

REACTIONS (3)
  - Cutaneous T-cell lymphoma [Not Recovered/Not Resolved]
  - Neoplasm recurrence [Unknown]
  - Condition aggravated [Unknown]
